FAERS Safety Report 8513830-1 (Version None)
Quarter: 2012Q3

REPORT INFORMATION
  Report Type: 
  Country: None (occurrence: None)
  Receive Date: 20120717
  Receipt Date: 20120703
  Transmission Date: 20120928
  Serious: Yes (Death, Other)
  Sender: FDA-Public Use
  Company Number: US-ACCORD-014038

PATIENT
  Age: 66 Year
  Sex: Female

DRUGS (5)
  1. MYCOPHENOLATE MEFETIL [Suspect]
     Indication: STEM CELL TRANSPLANT
  2. MELPHALAN HYDROCHLORIDE [Suspect]
     Indication: STEM CELL TRANSPLANT
  3. TACROLIMUS [Suspect]
     Indication: STEM CELL TRANSPLANT
  4. FLUDARABINE PHOSPHATE [Suspect]
     Indication: STEM CELL TRANSPLANT
     Dosage: DOSE: 24?5 MG/M2
  5. ALEMTUZUMAB [Suspect]
     Indication: STEM CELL TRANSPLANT
     Dosage: DOSE: 20?5 MG

REACTIONS (8)
  - TREMOR [None]
  - AMNESIA [None]
  - BRONCHOPULMONARY ASPERGILLOSIS [None]
  - HAEMORRHAGIC STROKE [None]
  - T-CELL LYMPHOMA [None]
  - CONFUSIONAL STATE [None]
  - CONVULSION [None]
  - OFF LABEL USE [None]
